FAERS Safety Report 9198382 (Version 3)
Quarter: 2013Q3

REPORT INFORMATION
  Report Type: Spontaneous
  Country: US (occurrence: US)
  Receive Date: 20130329
  Receipt Date: 20130822
  Transmission Date: 20140515
  Serious: Yes (Other)
  Sender: FDA-Public Use
  Company Number: US-AMGEN-USASP2013020218

PATIENT
  Age: 67 Year
  Sex: Female

DRUGS (2)
  1. PROLIA [Suspect]
     Indication: OSTEOPOROSIS POSTMENOPAUSAL
     Dosage: UNK
     Route: 065
     Dates: start: 201006
  2. BENLYSTA [Concomitant]
     Indication: SYSTEMIC LUPUS ERYTHEMATOSUS

REACTIONS (7)
  - Muscular weakness [Unknown]
  - Gait disturbance [Unknown]
  - Hypoaesthesia [Unknown]
  - Dyspnoea [Unknown]
  - Fall [Unknown]
  - Wrist fracture [Recovered/Resolved]
  - Bacterial test positive [Unknown]
